FAERS Safety Report 6677773-0 (Version None)
Quarter: 2010Q2

REPORT INFORMATION
  Report Type: 
  Country: None (occurrence: None)
  Receive Date: 20100412
  Receipt Date: 20100202
  Transmission Date: 20101027
  Serious: No
  Sender: FDA-Public Use
  Company Number: CA-ALEXION-A200901122

PATIENT
  Age: 62 Year
  Sex: Female

DRUGS (16)
  1. SOLIRIS [Suspect]
     Indication: PAROXYSMAL NOCTURNAL HAEMOGLOBINURIA
     Dosage: 600 MG, WEEKLY FOR FOUR WEEKS
     Route: 042
     Dates: start: 20091020, end: 20091110
  2. SOLIRIS [Suspect]
     Dosage: 900 MG EVERY TWO WEEKS
     Route: 042
     Dates: start: 20091117
  3. PANTAZOL [Concomitant]
     Dosage: UNK
  4. PENTASA [Concomitant]
  5. CIPRALEX                           /01588501/ [Concomitant]
  6. IMOVANE [Concomitant]
     Dosage: UNK
  7. FOLIC ACID [Concomitant]
     Dosage: UNK
  8. NITROGLYCERIN [Concomitant]
  9. ACTONEL [Concomitant]
     Dosage: UNK
  10. COUMADIN [Concomitant]
  11. PREDNISOLONE [Concomitant]
     Dosage: UNK
     Dates: end: 20100131
  12. LIPITOR [Concomitant]
  13. VITAMIN A [Concomitant]
  14. RAMIPRIL [Concomitant]
  15. CLONAZEPAM [Concomitant]
  16. BISOPROLOL [Concomitant]

REACTIONS (1)
  - HAEMOGLOBIN DECREASED [None]
